FAERS Safety Report 9206282 (Version 1)
Quarter: 2013Q2

REPORT INFORMATION
  Report Type: Spontaneous
  Country: US (occurrence: None)
  Receive Date: 20130401
  Receipt Date: 20130401
  Transmission Date: 20140414
  Serious: Yes (Death, Hospitalization)
  Sender: FDA-Public Use
  Company Number: None

PATIENT
  Age: 4 Year
  Sex: Male
  Weight: 21.5 kg

DRUGS (4)
  1. MERCAPTOPURINE [Suspect]
     Dates: end: 20130226
  2. METHOTREXATE [Suspect]
     Dates: end: 20130222
  3. PREDNISONE [Suspect]
     Dates: end: 20130212
  4. VINCRISTINE SULFATE [Suspect]
     Dates: end: 20130208

REACTIONS (4)
  - Pyrexia [None]
  - Respiratory distress [None]
  - Abdominal distension [None]
  - Pneumothorax [None]
